FAERS Safety Report 10661572 (Version 1)
Quarter: 2014Q4

REPORT INFORMATION
  Report Type: Spontaneous
  Country: CH (occurrence: CH)
  Receive Date: 20141218
  Receipt Date: 20141218
  Transmission Date: 20150529
  Serious: Yes (Hospitalization)
  Sender: FDA-Public Use
  Company Number: PHHY2014CH163518

PATIENT
  Age: 70 Year
  Sex: Male
  Weight: 73 kg

DRUGS (7)
  1. ANDREAFOL [Concomitant]
     Indication: VITAMIN SUPPLEMENTATION
     Dosage: 0.4 MG, QD
     Route: 048
     Dates: start: 20131130
  2. ASPIRIN CARDIO [Concomitant]
     Active Substance: ASPIRIN
     Indication: CARDIOVASCULAR EVENT PROPHYLAXIS
     Dosage: 1 DF, QD
     Route: 048
  3. COSAAR PLUS [Concomitant]
     Active Substance: HYDROCHLOROTHIAZIDE\LOSARTAN
     Indication: HYPERTENSION
     Dosage: 1 DF
     Route: 048
  4. CALCIMAGON-D3 [Concomitant]
     Active Substance: CALCIUM\CHOLECALCIFEROL
     Indication: OSTEOPOROSIS PROPHYLAXIS
     Dosage: 1 DF, UNK
     Route: 048
  5. EXJADE [Suspect]
     Active Substance: DEFERASIROX
     Indication: IRON OVERLOAD
     Dosage: 1000 MG, QD
     Route: 048
     Dates: start: 20141105, end: 20141117
  6. ALIMTA [Suspect]
     Active Substance: PEMETREXED DISODIUM
     Indication: PLEURAL MESOTHELIOMA MALIGNANT
     Dosage: 600 MG
     Route: 042
     Dates: start: 20141021, end: 20141021
  7. VITARUBIN//CYANOCOBALAMIN [Concomitant]
     Indication: VITAMIN SUPPLEMENTATION
     Dosage: 100 MG, EVERY 9 WEEKS
     Route: 042
     Dates: start: 20140930

REACTIONS (2)
  - Papilloedema [Not Recovered/Not Resolved]
  - Blindness [Not Recovered/Not Resolved]

NARRATIVE: CASE EVENT DATE: 20141116
